FAERS Safety Report 11882497 (Version 1)
Quarter: 2015Q4

REPORT INFORMATION
  Report Type: Spontaneous
  Country: US (occurrence: None)
  Receive Date: 20151230
  Receipt Date: 20151230
  Transmission Date: 20160305
  Serious: No
  Sender: FDA-Public Use
  Company Number: None

PATIENT
  Age: 32 Year
  Sex: Female
  Weight: 104.33 kg

DRUGS (4)
  1. VENLAFAXINE [Concomitant]
     Active Substance: VENLAFAXINE HYDROCHLORIDE
  2. VITAMIN D GUMMIES [Concomitant]
  3. MULTIVITAMIN [Concomitant]
     Active Substance: VITAMINS
  4. COPAXONE [Suspect]
     Active Substance: GLATIRAMER ACETATE
     Indication: MULTIPLE SCLEROSIS
     Dosage: 1 PRE FILLED SYRINGE, 3 TIMES PER WEEK, GIVEN INTO/UNDER THE SKIN

REACTIONS (6)
  - Injection site reaction [None]
  - Alopecia [None]
  - Injection site swelling [None]
  - Lipoatrophy [None]
  - Injection site erythema [None]
  - Injection site pain [None]
